FAERS Safety Report 17796604 (Version 2)
Quarter: 2025Q2

REPORT INFORMATION
  Report Type: Spontaneous
  Country: US (occurrence: US)
  Receive Date: 20200518
  Receipt Date: 20250621
  Transmission Date: 20250716
  Serious: Yes (Hospitalization, Other)
  Sender: AUROBINDO
  Company Number: US-MLMSERVICE-20200430-2278926-1

PATIENT
  Age: 27 Year
  Sex: Female

DRUGS (1)
  1. SULFAMETHOXAZOLE\TRIMETHOPRIM [Suspect]
     Active Substance: SULFAMETHOXAZOLE\TRIMETHOPRIM
     Indication: Product used for unknown indication
     Route: 048

REACTIONS (5)
  - Autoimmune hepatitis [Recovering/Resolving]
  - Arthritis [Recovered/Resolved]
  - Systemic lupus erythematosus [Recovering/Resolving]
  - Purtscher retinopathy [Recovered/Resolved]
  - Urine protein/creatinine ratio increased [Unknown]
